FAERS Safety Report 10872165 (Version 3)
Quarter: 2016Q3

REPORT INFORMATION
  Report Type: Report from Study
  Country: US (occurrence: US)
  Receive Date: 20150226
  Receipt Date: 20160705
  Transmission Date: 20161109
  Serious: Yes (Hospitalization)
  Sender: FDA-Public Use
  Company Number: US-ACTELION-A-NJ2015-113526

PATIENT
  Age: 54 Year
  Sex: Female

DRUGS (2)
  1. TRACLEER [Suspect]
     Active Substance: BOSENTAN
     Indication: PULMONARY ARTERIAL HYPERTENSION
     Dosage: 125 MG, BID
     Route: 048
     Dates: start: 20130107
  2. ADCIRCA [Concomitant]
     Active Substance: TADALAFIL

REACTIONS (6)
  - Inflammation [Unknown]
  - Pain in extremity [Unknown]
  - Erythema [Unknown]
  - Localised infection [Unknown]
  - Sepsis [Unknown]
  - Limb operation [Unknown]

NARRATIVE: CASE EVENT DATE: 20150201
